FAERS Safety Report 4474773-6 (Version None)
Quarter: 2004Q4

REPORT INFORMATION
  Report Type: 
  Country: None (occurrence: None)
  Receive Date: 20041012
  Receipt Date: 20040928
  Transmission Date: 20050328
  Serious: No
  Sender: FDA-Public Use
  Company Number: 04IN000004

PATIENT
  Age: 30 Year
  Sex: Male

DRUGS (3)
  1. LITHIUM CARBONATE [Suspect]
     Indication: BIPOLAR I DISORDER
     Dosage: 1200 MG, QD
  2. HALOPERIDOL [Concomitant]
  3. OLANZAPINE [Concomitant]

REACTIONS (7)
  - AKATHISIA [None]
  - DRUG INTERACTION POTENTIATION [None]
  - ERECTILE DYSFUNCTION [None]
  - IDIOSYNCRATIC DRUG REACTION [None]
  - MUSCLE RIGIDITY [None]
  - PRIAPISM [None]
  - TREMOR [None]
